FAERS Safety Report 17918058 (Version 1)
Quarter: 2020Q2

REPORT INFORMATION
  Report Type: Spontaneous
  Country: NL (occurrence: NL)
  Receive Date: 20200619
  Receipt Date: 20200619
  Transmission Date: 20200714
  Serious: Yes (Death, Life-Threatening, Hospitalization, Other)
  Sender: FDA-Public Use
  Company Number: NL-CELGENEUS-NLD-20191206609

PATIENT
  Age: 62 Year
  Sex: Female
  Weight: 49.6 kg

DRUGS (4)
  1. DEXAMETHASONE. [Suspect]
     Active Substance: DEXAMETHASONE
     Indication: PLASMA CELL MYELOMA
     Route: 048
     Dates: start: 20190902, end: 20190913
  2. REVLIMID [Suspect]
     Active Substance: LENALIDOMIDE
     Indication: PLASMA CELL MYELOMA
     Route: 048
     Dates: start: 20190902, end: 20190915
  3. VELCADE [Suspect]
     Active Substance: BORTEZOMIB
     Indication: PLASMA CELL MYELOMA
     Dosage: 2 MILLIGRAM/SQ. METER
     Route: 058
     Dates: start: 20190902, end: 20190909
  4. VELCADE [Suspect]
     Active Substance: BORTEZOMIB
     Dosage: 1 MILLIGRAM/KILOGRAM
     Route: 058
     Dates: start: 20190912, end: 20190912

REACTIONS (7)
  - Hypotension [Unknown]
  - Diarrhoea [Recovered/Resolved]
  - Atrial fibrillation [Fatal]
  - Vomiting [Unknown]
  - Renal impairment [Fatal]
  - Septic shock [Fatal]
  - Dyspnoea [Unknown]

NARRATIVE: CASE EVENT DATE: 20190913
